FAERS Safety Report 4391561-X (Version None)
Quarter: 2004Q3

REPORT INFORMATION
  Report Type: 
  Country: None (occurrence: None)
  Receive Date: 20040702
  Receipt Date: 20040406
  Transmission Date: 20050211
  Serious: Yes (Other)
  Sender: FDA-Public Use
  Company Number: 2004UW02489

PATIENT
  Age: 53 Year
  Sex: Male

DRUGS (15)
  1. CRESTOR [Suspect]
     Dosage: 10-20MG QD PO
     Route: 048
     Dates: start: 20031114, end: 20031210
  2. LIPITOR [Suspect]
  3. DIGOXIN [Concomitant]
  4. CELEBREX [Concomitant]
  5. ALLOPURINOL [Concomitant]
  6. HYZAAR [Concomitant]
  7. VICOPROFEN [Concomitant]
  8. ALLEGRA-D [Concomitant]
  9. VIAGRA [Concomitant]
  10. AVANDAMET [Concomitant]
  11. TRICOR [Concomitant]
  12. LEVITRA [Concomitant]
  13. GLUCOVANCE [Concomitant]
  14. COZAAR [Concomitant]
  15. TRICOR [Concomitant]

REACTIONS (3)
  - MEDICATION ERROR [None]
  - RESPIRATORY TRACT INFECTION [None]
  - THROMBOCYTOPENIA [None]
